FAERS Safety Report 9775510 (Version 2)
Quarter: 2014Q1

REPORT INFORMATION
  Report Type: Spontaneous
  Country: US (occurrence: US)
  Receive Date: 20131220
  Receipt Date: 20140121
  Transmission Date: 20141002
  Serious: Yes (Hospitalization)
  Sender: FDA-Public Use
  Company Number: US-PFIZER INC-2013363737

PATIENT
  Age: 77 Year
  Sex: Female
  Weight: 84 kg

DRUGS (9)
  1. LEVOFLOXACIN [Suspect]
     Indication: DIVERTICULITIS
     Dosage: 500 MG PIGGYBACK DAILY
     Route: 042
  2. METRONIDAZOLE [Suspect]
     Dosage: 500 MG, PIGGYBACK EVERY 8 HOURS
     Route: 042
  3. ALLOPURINOL [Concomitant]
     Dosage: 300 MG, DAILY
     Route: 048
  4. DILTIAZEM CD [Concomitant]
     Dosage: 240 MG, DAILY
     Route: 048
  5. FAMOTIDINE [Concomitant]
     Dosage: 40 MG, 1X/DAY
     Route: 048
  6. FUROSEMIDE [Concomitant]
     Dosage: 20 MG, 1X/DAY
     Route: 048
  7. LEVOTHYROXINE [Concomitant]
     Dosage: 88 UG, 1X/DAY
     Route: 048
  8. PAROXETINE [Concomitant]
     Dosage: 20 MG, 1X/DAY
     Route: 048
  9. WARFARIN [Concomitant]
     Dosage: UNK

REACTIONS (7)
  - Dyskinesia [Recovered/Resolved]
  - Grimacing [Recovered/Resolved]
  - Muscle contracture [Recovered/Resolved]
  - Confusional state [Recovered/Resolved]
  - Muscle twitching [Recovered/Resolved]
  - Muscle spasms [Recovered/Resolved]
  - Dysarthria [Recovered/Resolved]
